FAERS Safety Report 12959644 (Version 1)
Quarter: 2016Q4

REPORT INFORMATION
  Report Type: Spontaneous
  Country: GB (occurrence: GB)
  Receive Date: 20161121
  Receipt Date: 20161121
  Transmission Date: 20170207
  Serious: Yes (Hospitalization)
  Sender: FDA-Public Use
  Company Number: GB-ROCHE-1853504

PATIENT
  Age: 35 Year
  Sex: Male

DRUGS (2)
  1. CICLOSPORIN [Interacting]
     Active Substance: CYCLOSPORINE
     Indication: EVANS SYNDROME
     Route: 065
  2. ORLISTAT [Suspect]
     Active Substance: ORLISTAT
     Indication: OBESITY
     Route: 065

REACTIONS (2)
  - Drug interaction [Unknown]
  - Evans syndrome [Unknown]
